FAERS Safety Report 6568160-4 (Version None)
Quarter: 2010Q1

REPORT INFORMATION
  Report Type: 
  Country: None (occurrence: None)
  Receive Date: 20100203
  Receipt Date: 20100125
  Transmission Date: 20100710
  Serious: Yes (Other)
  Sender: FDA-Public Use
  Company Number: CH-JNJFOC-20091205380

PATIENT
  Age: 36 Year
  Sex: Female

DRUGS (2)
  1. REMICADE [Suspect]
     Indication: PSORIATIC ARTHROPATHY
     Dosage: DURATION 7 MONTHS
     Route: 042
  2. SPIRICORT [Concomitant]
     Indication: PSORIATIC ARTHROPATHY
     Dosage: DOSE: 5-10MG/DAY
     Route: 048

REACTIONS (1)
  - PERIPHERAL NERVE LESION [None]
